FAERS Safety Report 14179551 (Version 1)
Quarter: 2017Q4

REPORT INFORMATION
  Report Type: Spontaneous
  Country: FR (occurrence: FR)
  Receive Date: 20171110
  Receipt Date: 20171110
  Transmission Date: 20180321
  Serious: Yes (Other)
  Sender: FDA-Public Use
  Company Number: FR-MERCK KGAA-2033817

PATIENT
  Sex: Female

DRUGS (1)
  1. NOVOTHYROX [Suspect]
     Active Substance: LEVOTHYROXINE SODIUM
     Indication: HYPOTHYROIDISM
     Dates: start: 201703

REACTIONS (9)
  - Hyperthyroidism [None]
  - Abdominal pain lower [None]
  - Irritability [None]
  - Vomiting [None]
  - Weight increased [None]
  - Loss of personal independence in daily activities [None]
  - Fatigue [None]
  - Insomnia [None]
  - Myalgia [None]

NARRATIVE: CASE EVENT DATE: 2017
